FAERS Safety Report 12835991 (Version 4)
Quarter: 2017Q2

REPORT INFORMATION
  Report Type: Report from Study
  Country: CA (occurrence: CA)
  Receive Date: 20161011
  Receipt Date: 20170518
  Transmission Date: 20170830
  Serious: Yes (Hospitalization, Other)
  Sender: FDA-Public Use
  Company Number: CA-BEH-2016072714

PATIENT
  Age: 37 Year
  Sex: Male

DRUGS (4)
  1. HIZENTRA [Suspect]
     Active Substance: HUMAN IMMUNOGLOBULIN G
     Indication: IMMUNODEFICIENCY COMMON VARIABLE
     Dosage: 10 G, QW
     Route: 058
     Dates: start: 20160414
  2. PANTOLOC                           /01263204/ [Concomitant]
     Active Substance: PANTOPRAZOLE SODIUM
     Route: 065
  3. ANTIVIRALS [Concomitant]
     Active Substance: UNSPECIFIED INGREDIENT
     Route: 065
  4. SEPTRA [Concomitant]
     Active Substance: SULFAMETHOXAZOLE\TRIMETHOPRIM
     Dosage: UNK, BID
     Route: 065

REACTIONS (8)
  - Synovial cyst [Unknown]
  - Respiratory distress [Unknown]
  - Inflammation [Unknown]
  - Joint effusion [Unknown]
  - Autoimmune haemolytic anaemia [Recovering/Resolving]
  - Fatigue [Recovering/Resolving]
  - Infusion site induration [Not Recovered/Not Resolved]
  - Dyspnoea [Recovering/Resolving]

NARRATIVE: CASE EVENT DATE: 201607
